FAERS Safety Report 13261234 (Version 1)
Quarter: 2017Q1

REPORT INFORMATION
  Report Type: Spontaneous
  Country: US (occurrence: US)
  Receive Date: 20170222
  Receipt Date: 20170222
  Transmission Date: 20170428
  Serious: Yes (Hospitalization)
  Sender: FDA-Public Use
  Company Number: US-SA-2017SA028906

PATIENT
  Age: 77 Year
  Sex: Female
  Weight: 65.8 kg

DRUGS (4)
  1. NOVOLOG [Suspect]
     Active Substance: INSULIN ASPART
     Indication: TYPE 2 DIABETES MELLITUS
     Dosage: DOSE: 2-3 UNITS, SLIDING SCALE IF BLOOD SUGAR OVER 200 MG/DL
     Route: 058
     Dates: start: 2016
  2. FLEXPEN [Concomitant]
     Active Substance: UNSPECIFIED INGREDIENT
     Indication: TYPE 2 DIABETES MELLITUS
     Route: 058
     Dates: start: 2016
  3. TOUJEO [Suspect]
     Active Substance: INSULIN GLARGINE
     Indication: TYPE 2 DIABETES MELLITUS
     Dosage: DOSE: 40-50 U, QD BASED ON BLOOD SUGARS
     Route: 058
  4. SOLOSTAR [Concomitant]
     Active Substance: DEVICE
     Indication: TYPE 2 DIABETES MELLITUS
     Route: 058

REACTIONS (6)
  - Fall [Unknown]
  - Dizziness [Unknown]
  - Syncope [Unknown]
  - Insulin resistance [Unknown]
  - Atrial fibrillation [Unknown]
  - Blood glucose decreased [Unknown]

NARRATIVE: CASE EVENT DATE: 201611
